FAERS Safety Report 14756476 (Version 1)
Quarter: 2018Q2

REPORT INFORMATION
  Report Type: Spontaneous
  Country: US (occurrence: US)
  Receive Date: 20180413
  Receipt Date: 20180413
  Transmission Date: 20180711
  Serious: Yes (Life-Threatening)
  Sender: FDA-Public Use
  Company Number: US-TEVA-2018-US-879784

PATIENT
  Sex: Female

DRUGS (1)
  1. HYDROMORPHONE [Suspect]
     Active Substance: HYDROMORPHONE
     Indication: GASTROINTESTINAL MOTILITY DISORDER
     Dosage: 28.5714 ML DAILY;
     Route: 065

REACTIONS (2)
  - Product use in unapproved indication [Unknown]
  - Body mass index decreased [Unknown]
